FAERS Safety Report 7097526-1 (Version None)
Quarter: 2010Q4

REPORT INFORMATION
  Report Type: 
  Country: None (occurrence: None)
  Receive Date: 20101111
  Receipt Date: 20101108
  Transmission Date: 20110411
  Serious: Yes (Hospitalization)
  Sender: FDA-Public Use
  Company Number: SE-MERCK-1011SWE00030

PATIENT
  Age: 66 Year
  Sex: Female

DRUGS (3)
  1. FOSAMAX [Suspect]
     Indication: OSTEOPOROSIS
     Route: 048
     Dates: start: 20100129, end: 20100304
  2. ALVEDON [Concomitant]
     Route: 065
  3. CALCICHEW D3 [Concomitant]
     Route: 065

REACTIONS (1)
  - NERVE ROOT LESION [None]
